FAERS Safety Report 24432396 (Version 1)
Quarter: 2024Q4

REPORT INFORMATION
  Report Type: Report from Study
  Country: IN (occurrence: IN)
  Receive Date: 20241014
  Receipt Date: 20241014
  Transmission Date: 20250115
  Serious: Yes (Death)
  Sender: ROCHE
  Company Number: IN-ROCHE-10000037248

PATIENT
  Age: 55 Year
  Sex: Male

DRUGS (1)
  1. TECENTRIQ [Suspect]
     Active Substance: ATEZOLIZUMAB
     Indication: Hepatocellular carcinoma
     Route: 042
     Dates: start: 20240518

REACTIONS (4)
  - General physical health deterioration [Unknown]
  - Pain [Unknown]
  - Cerebral disorder [Fatal]
  - Brain oedema [Fatal]
